FAERS Safety Report 6719323-6 (Version None)
Quarter: 2010Q2

REPORT INFORMATION
  Report Type: 
  Country: None (occurrence: None)
  Receive Date: 20100511
  Receipt Date: 20100429
  Transmission Date: 20101027
  Serious: Yes (Other)
  Sender: FDA-Public Use
  Company Number: PHHY2010FR28128

PATIENT
  Age: 64 Year
  Sex: Male

DRUGS (7)
  1. RASILEZ [Suspect]
     Indication: HYPERTENSION
     Dosage: 300 MG, UNK
     Dates: start: 20100301, end: 20100319
  2. RASILEZ HCT [Suspect]
     Dosage: UNK
     Dates: start: 20100329
  3. METFORMIN [Concomitant]
     Dosage: 850 MG, BID DAILY
  4. EZETROL [Concomitant]
     Dosage: 10 MG, DAILY
  5. HYPERIUM [Concomitant]
     Dosage: 1 MG, BID DAILY
  6. CRESTOR [Concomitant]
     Dosage: 5 MG, DAILY
  7. LERCAPRESS [Concomitant]

REACTIONS (6)
  - DRUG INEFFECTIVE [None]
  - HYPERTENSION [None]
  - LOSS OF CONSCIOUSNESS [None]
  - MALAISE [None]
  - TONGUE BITING [None]
  - URINE ABNORMALITY [None]
